FAERS Safety Report 14780390 (Version 2)
Quarter: 2018Q2

REPORT INFORMATION
  Report Type: Not Available
  Country: US (occurrence: US)
  Receive Date: 20180419
  Receipt Date: 20180524
  Transmission Date: 20180711
  Serious: No
  Sender: FDA-Public Use
  Company Number: US-NEUROCRINE BIOSCIENCES INC.-2018NBI00720

PATIENT
  Age: 74 Year
  Sex: Male
  Weight: 83.99 kg

DRUGS (10)
  1. INGREZZA [Suspect]
     Active Substance: VALBENAZINE
     Indication: MEIGE^S SYNDROME
     Route: 048
     Dates: start: 2018, end: 201803
  2. INGREZZA [Suspect]
     Active Substance: VALBENAZINE
     Indication: TARDIVE DYSKINESIA
     Route: 048
     Dates: start: 201802, end: 2018
  3. ISOSORBIDE. [Concomitant]
     Active Substance: ISOSORBIDE
     Dosage: AT BEDTIME
     Route: 048
  4. ASPIRIN. [Concomitant]
     Active Substance: ASPIRIN
     Route: 048
  5. CALCIUM ROSUVASTATIN [Concomitant]
  6. NO DRUG NAME [Concomitant]
  7. CARVEDILOL. [Concomitant]
     Active Substance: CARVEDILOL
     Route: 048
  8. HYDRALAZINE [Concomitant]
     Active Substance: HYDRALAZINE HYDROCHLORIDE
     Route: 048
  9. RANITIDINE. [Concomitant]
     Active Substance: RANITIDINE
  10. EPLERENONE. [Concomitant]
     Active Substance: EPLERENONE

REACTIONS (3)
  - Somnolence [Recovering/Resolving]
  - Off label use [Unknown]
  - Trismus [Recovering/Resolving]

NARRATIVE: CASE EVENT DATE: 201802
